FAERS Safety Report 6881892-3 (Version None)
Quarter: 2010Q3

REPORT INFORMATION
  Report Type: 
  Country: None (occurrence: None)
  Receive Date: 20100728
  Receipt Date: 20100728
  Transmission Date: 20110219
  Serious: Yes (Hospitalization, Other)
  Sender: FDA-Public Use
  Company Number: None

PATIENT
  Sex: Female
  Weight: 63.5036 kg

DRUGS (1)
  1. TAMOXIFEN CITRATE [Suspect]
     Indication: BREAST CANCER
     Dosage: 10 MG TWICE DAILY BY MOUTH
     Route: 048
     Dates: start: 20100605, end: 20100619

REACTIONS (7)
  - EYE PRURITUS [None]
  - ORAL FUNGAL INFECTION [None]
  - PRODUCT QUALITY ISSUE [None]
  - PRURITUS [None]
  - RASH ERYTHEMATOUS [None]
  - URTICARIA [None]
  - VULVOVAGINAL MYCOTIC INFECTION [None]
